FAERS Safety Report 24167911 (Version 1)
Quarter: 2024Q3

REPORT INFORMATION
  Report Type: Spontaneous
  Country: ZA (occurrence: ZA)
  Receive Date: 20240802
  Receipt Date: 20240802
  Transmission Date: 20241016
  Serious: Yes (Other)
  Sender: PFIZER
  Company Number: ZA-PFIZER INC-PV202400099824

PATIENT
  Age: 37 Year
  Sex: Female
  Weight: 134 kg

DRUGS (1)
  1. METHOTREXATE SODIUM [Suspect]
     Active Substance: METHOTREXATE SODIUM
     Indication: Rheumatoid arthritis
     Dosage: 25 MG, WEEKLY
     Dates: start: 202006, end: 202109

REACTIONS (2)
  - COVID-19 pneumonia [Unknown]
  - Treatment failure [Unknown]

NARRATIVE: CASE EVENT DATE: 20210701
